FAERS Safety Report 10041981 (Version 1)
Quarter: 2014Q1

REPORT INFORMATION
  Report Type: Spontaneous
  Country: US (occurrence: None)
  Receive Date: 20140325
  Receipt Date: 20140325
  Transmission Date: 20141002
  Serious: Yes (Death)
  Sender: FDA-Public Use
  Company Number: CPI 5711

PATIENT
  Age: 5 Day
  Sex: Male
  Weight: .64 kg

DRUGS (1)
  1. PEDEA [Suspect]
     Indication: PATENT DUCTUS ARTERIOSUS
     Route: 042

REACTIONS (5)
  - Respiratory acidosis [None]
  - Metabolic acidosis [None]
  - Oxygen saturation decreased [None]
  - Hypotension [None]
  - Hypoxia [None]
